FAERS Safety Report 9174228 (Version 1)
Quarter: 2013Q1

REPORT INFORMATION
  Report Type: Spontaneous
  Country: ES (occurrence: ES)
  Receive Date: 20130320
  Receipt Date: 20130320
  Transmission Date: 20140127
  Serious: Yes (Other)
  Sender: FDA-Public Use
  Company Number: ES-FRI-1000043539

PATIENT
  Age: 48 Year
  Sex: Female

DRUGS (1)
  1. ACLIDINIUM BROMIDE [Suspect]
     Dosage: 322 MCG
     Route: 055
     Dates: start: 20130205, end: 20130205

REACTIONS (5)
  - Dyspnoea [Recovered/Resolved]
  - Pharyngitis [Recovering/Resolving]
  - Pruritus [Recovered/Resolved]
  - Muscle spasms [Recovered/Resolved]
  - Tachycardia [Recovered/Resolved]
